FAERS Safety Report 10573575 (Version 1)
Quarter: 2014Q4

REPORT INFORMATION
  Report Type: Report from Study
  Country: FR (occurrence: FR)
  Receive Date: 20141110
  Receipt Date: 20141110
  Transmission Date: 20150529
  Serious: Yes (Hospitalization)
  Sender: FDA-Public Use
  Company Number: FR-B.I. PHARMACEUTICALS,INC./RIDGEFIELD-2014-BI-53330BI

PATIENT
  Age: 37 Year
  Sex: Female

DRUGS (6)
  1. VIRAMUNE [Suspect]
     Active Substance: NEVIRAPINE
     Indication: ANTIVIRAL TREATMENT
     Dosage: FORMULATION: XR (EXTENDED-RELEASE)
     Route: 065
  2. INVIRASE [Concomitant]
     Active Substance: SAQUINAVIR MESYLATE
     Indication: ANTIVIRAL TREATMENT
     Route: 065
  3. VIREAD [Concomitant]
     Active Substance: TENOFOVIR DISOPROXIL FUMARATE
     Indication: ANTIVIRAL TREATMENT
     Route: 065
  4. EPIVIR [Concomitant]
     Active Substance: LAMIVUDINE
     Indication: ANTIVIRAL TREATMENT
     Route: 065
  5. RETROVIR [Concomitant]
     Active Substance: ZIDOVUDINE
     Indication: ANTIVIRAL TREATMENT
     Route: 065
  6. NORVIR [Concomitant]
     Active Substance: RITONAVIR
     Indication: ANTIVIRAL TREATMENT
     Route: 065

REACTIONS (3)
  - Amniotic fluid volume decreased [Unknown]
  - Premature delivery [Unknown]
  - Amniorrhoea [Unknown]

NARRATIVE: CASE EVENT DATE: 20140924
